FAERS Safety Report 20139085 (Version 1)
Quarter: 2021Q4

REPORT INFORMATION
  Report Type: Other
  Country: US (occurrence: None)
  Receive Date: 20211202
  Receipt Date: 20211202
  Transmission Date: 20220303
  Serious: Yes (Other)
  Sender: FDA-Public Use
  Company Number: US-ROCHE-2963597

PATIENT
  Sex: Male
  Weight: 60.95 kg

DRUGS (5)
  1. NUTROPIN [Suspect]
     Active Substance: SOMATROPIN
     Indication: Hypopituitarism
     Dosage: 3.0 MG 6X PER WEEK
     Route: 058
  2. NUTROPIN [Suspect]
     Active Substance: SOMATROPIN
  3. CELLCEPT [Suspect]
     Active Substance: MYCOPHENOLATE MOFETIL
     Indication: Product used for unknown indication
     Route: 065
  4. ANASTROZOLE [Concomitant]
     Active Substance: ANASTROZOLE
     Route: 048
     Dates: start: 20200901
  5. ZYRTEC (UNITED STATES) [Concomitant]

REACTIONS (3)
  - Fracture [Recovered/Resolved]
  - Osteitis [Unknown]
  - Insulin-like growth factor increased [Unknown]
